FAERS Safety Report 7091217-9 (Version None)
Quarter: 2010Q4

REPORT INFORMATION
  Report Type: 
  Country: None (occurrence: None)
  Receive Date: 20101101
  Receipt Date: 20101014
  Transmission Date: 20110411
  Serious: Yes (Other)
  Sender: FDA-Public Use
  Company Number: US-1183722

PATIENT
  Age: 75 Year
  Sex: Female
  Weight: 88.4514 kg

DRUGS (4)
  1. LEVOBUNOLOL 0.5 % OPHTHALMIC SOLUTION [Suspect]
     Indication: GLAUCOMA
     Dosage: (1 GTT BID OD OPHTHALMIC)
     Route: 047
  2. LIPITOR [Concomitant]
  3. TYLENOL (CAPLET) [Concomitant]
  4. ASPIRIN [Concomitant]

REACTIONS (1)
  - ORGANISING PNEUMONIA [None]
